FAERS Safety Report 5824398-2 (Version None)
Quarter: 2008Q3

REPORT INFORMATION
  Report Type: 
  Country: None (occurrence: None)
  Receive Date: 20080728
  Receipt Date: 20080722
  Transmission Date: 20090109
  Serious: Yes (Other)
  Sender: FDA-Public Use
  Company Number: A0738850A

PATIENT

DRUGS (2)
  1. LOVAZA [Suspect]
     Route: 048
  2. ATENOLOL [Concomitant]

REACTIONS (1)
  - CEREBROVASCULAR ACCIDENT [None]
